FAERS Safety Report 23190781 (Version 1)
Quarter: 2023Q4

REPORT INFORMATION
  Report Type: Spontaneous
  Country: IT (occurrence: IT)
  Receive Date: 20231116
  Receipt Date: 20231116
  Transmission Date: 20240109
  Serious: Yes (Hospitalization, Other)
  Sender: FDA-Public Use
  Company Number: IT-SA-2023SA346998

PATIENT
  Age: 84 Year
  Sex: Female

DRUGS (1)
  1. CLOPIDOGREL BISULFATE [Suspect]
     Active Substance: CLOPIDOGREL BISULFATE
     Indication: Antiplatelet therapy
     Dosage: UNK

REACTIONS (4)
  - Pancytopenia [Recovering/Resolving]
  - Chest pain [Recovering/Resolving]
  - Anaemia [Recovering/Resolving]
  - Neutropenia [Recovered/Resolved]
